FAERS Safety Report 17739871 (Version 1)
Quarter: 2020Q2

REPORT INFORMATION
  Report Type: Spontaneous
  Country: US (occurrence: US)
  Receive Date: 20200504
  Receipt Date: 20200504
  Transmission Date: 20200714
  Serious: Yes (Other)
  Sender: FDA-Public Use
  Company Number: US-DRREDDYS-USA/USA/20/0122475

PATIENT
  Age: 27 Year
  Sex: Female

DRUGS (3)
  1. ZENATANE [Suspect]
     Active Substance: ISOTRETINOIN
     Dosage: RNA ISSUE DATE WAS NOTED AS 06 MARCH 2020, WITH AVERAGE DAILY DOSE OF 40 MG
     Route: 048
     Dates: end: 20200402
  2. ZENATANE [Suspect]
     Active Substance: ISOTRETINOIN
     Dosage: RNA ISSUE DATE WAS NOTED AS 05 FEBRUARY 2020, WITH AVERAGE DAILY DOSE OF 40 MG
     Route: 048
  3. ZENATANE [Suspect]
     Active Substance: ISOTRETINOIN
     Indication: PRODUCT USED FOR UNKNOWN INDICATION
     Dosage: RNA ISSUE DATE WAS NOTED AS 06 JANUARY 2020, WITH AVERAGE DAILY DOSE OF 40 MG
     Route: 048
     Dates: start: 20200106

REACTIONS (2)
  - Foetal exposure during pregnancy [Unknown]
  - Ectopic pregnancy [Recovered/Resolved]

NARRATIVE: CASE EVENT DATE: 20200413
